FAERS Safety Report 6917218-6 (Version None)
Quarter: 2010Q3

REPORT INFORMATION
  Report Type: 
  Country: None (occurrence: None)
  Receive Date: 20100804
  Receipt Date: 20100721
  Transmission Date: 20110219
  Serious: Yes (Hospitalization)
  Sender: FDA-Public Use
  Company Number: 7010100

PATIENT
  Sex: Female

DRUGS (1)
  1. REBIF [Suspect]
     Indication: RELAPSING-REMITTING MULTIPLE SCLEROSIS
     Dosage: 22 MCG
     Dates: start: 20091120

REACTIONS (4)
  - EXERCISE LACK OF [None]
  - FATIGUE [None]
  - HYPOAESTHESIA [None]
  - INJECTION SITE ERYTHEMA [None]
